FAERS Safety Report 6779177-9 (Version None)
Quarter: 2010Q2

REPORT INFORMATION
  Report Type: 
  Country: None (occurrence: None)
  Receive Date: 20100618
  Receipt Date: 20100610
  Transmission Date: 20101027
  Serious: Yes (Other)
  Sender: FDA-Public Use
  Company Number: JP-BRISTOL-MYERS SQUIBB COMPANY-15149685

PATIENT
  Age: 64 Year
  Sex: Male

DRUGS (1)
  1. TAXOL [Suspect]
     Indication: OESOPHAGEAL CARCINOMA
     Route: 041

REACTIONS (2)
  - MACULAR OEDEMA [None]
  - MACULOPATHY [None]
